FAERS Safety Report 4421903-8 (Version None)
Quarter: 2004Q3

REPORT INFORMATION
  Report Type: 
  Country: None (occurrence: None)
  Receive Date: 20040805
  Receipt Date: 20040721
  Transmission Date: 20050211
  Serious: Yes (Other)
  Sender: FDA-Public Use
  Company Number: A-US2004-05257

PATIENT
  Age: 84 Year
  Sex: Female
  Weight: 73 kg

DRUGS (9)
  1. TRACLEER [Suspect]
     Indication: PULMONARY HYPERTENSION
     Dosage: SEE IMAGE
     Route: 048
     Dates: start: 20031201, end: 20040101
  2. TRACLEER [Suspect]
     Indication: PULMONARY HYPERTENSION
     Dosage: SEE IMAGE
     Route: 048
     Dates: start: 20040102, end: 20040202
  3. SOTALOL HCL [Concomitant]
  4. ATACAND [Concomitant]
  5. NORVASC [Concomitant]
  6. ZOCOR [Concomitant]
  7. COUMADIN [Concomitant]
  8. LASIX [Concomitant]
  9. LEVOXYL [Concomitant]

REACTIONS (12)
  - ALANINE AMINOTRANSFERASE INCREASED [None]
  - ANOREXIA [None]
  - ASPARTATE AMINOTRANSFERASE INCREASED [None]
  - BACK PAIN [None]
  - BLOOD ALKALINE PHOSPHATASE INCREASED [None]
  - BLOOD BILIRUBIN INCREASED [None]
  - BLOOD PRESSURE INCREASED [None]
  - DYSPNOEA [None]
  - HEPATOTOXICITY [None]
  - LIVER FUNCTION TEST ABNORMAL [None]
  - OEDEMA PERIPHERAL [None]
  - PRURITUS [None]
